FAERS Safety Report 12950127 (Version 1)
Quarter: 2016Q4

REPORT INFORMATION
  Report Type: Spontaneous
  Country: US (occurrence: US)
  Receive Date: 20161116
  Receipt Date: 20161116
  Transmission Date: 20170207
  Serious: No
  Sender: FDA-Public Use
  Company Number: None

PATIENT
  Age: 64 Year
  Sex: Male

DRUGS (1)
  1. CAPECITABINE TAB 150MG [Suspect]
     Active Substance: CAPECITABINE
     Indication: COLON CANCER

REACTIONS (2)
  - Palmar-plantar erythrodysaesthesia syndrome [None]
  - Wrong technique in product usage process [None]

NARRATIVE: CASE EVENT DATE: 20161115
